FAERS Safety Report 4668317-3 (Version None)
Quarter: 2005Q2

REPORT INFORMATION
  Report Type: 
  Country: None (occurrence: None)
  Receive Date: 20050523
  Receipt Date: 20050318
  Transmission Date: 20051028
  Serious: Yes (Other)
  Sender: FDA-Public Use
  Company Number: PHEH2005US03332

PATIENT
  Age: 68 Year
  Sex: Male

DRUGS (18)
  1. ZOMETA [Suspect]
     Indication: METASTASES TO BONE
     Dosage: 4 MG EVERY 4 WEEKS
     Route: 042
     Dates: start: 20030325, end: 20040402
  2. MITOXANTRONE [Concomitant]
     Indication: CHEMOTHERAPY
     Dosage: 22 MG EVERY 3 WEEKS
     Dates: start: 20031101, end: 20031201
  3. PEPCID [Concomitant]
     Indication: ANTIALLERGIC THERAPY
     Dosage: 20 MG EVERY WEEK
     Dates: start: 20040501
  4. THALIDOMIDE [Concomitant]
     Indication: PROSTATE CANCER
     Dosage: 100 MG, QD
     Dates: start: 20031201, end: 20040401
  5. THALIDOMIDE [Concomitant]
     Dosage: 150 MG, QD
  6. PREMARIN [Concomitant]
     Indication: OESTROGEN REPLACEMENT THERAPY
     Dosage: 0.63 MG, QD
     Dates: start: 19920101
  7. DURAGESIC-100 [Concomitant]
     Indication: PAIN
     Dosage: 25 MEQ, UNK
     Route: 062
     Dates: start: 20040601
  8. LUPRON [Concomitant]
     Indication: PROSTATE CANCER
     Dosage: 22.5 MG EVERY 3 MONTHS
     Dates: start: 19980101
  9. CASODEX [Concomitant]
     Indication: PROSTATE CANCER
     Dates: start: 20001101, end: 20010601
  10. MEGACE [Concomitant]
     Indication: PROSTATE CANCER
     Dates: start: 20010601, end: 20010101
  11. KETOCONAZOLE [Concomitant]
     Indication: PROSTATE CANCER
     Dosage: 1200 MG, QD
     Dates: start: 20010101, end: 20010101
  12. ZAFEN [Concomitant]
     Indication: ANTIEMETIC SUPPORTIVE CARE
     Dosage: 32 MG, EVERY 3 WEEKS
     Dates: start: 20030401
  13. TAXOTERE [Concomitant]
     Indication: CHEMOTHERAPY
     Dosage: 115 MG EVERY 3 WEEKS
     Dates: start: 20030401, end: 20030711
  14. DECADRON                                /CAN/ [Concomitant]
     Indication: ANTIEMETIC SUPPORTIVE CARE
     Dosage: 20 MGN EVERY 3 WEEKS
     Dates: start: 20031101
  15. BENADRYL [Concomitant]
     Indication: ANTIALLERGIC THERAPY
     Dosage: 50 MG EVERY WEEK
     Dates: start: 20040501
  16. BENADRYL [Concomitant]
     Dosage: 25 MG EVERY WEEK
  17. TAXOL [Concomitant]
     Indication: CHEMOTHERAPY
     Dosage: 150 MG EVERY WEEK
  18. TAXOL [Concomitant]
     Dosage: 115 MG EVERY WEEK
     Dates: start: 20040501

REACTIONS (5)
  - ASEPTIC NECROSIS BONE [None]
  - JAW DISORDER [None]
  - OSTEOMYELITIS [None]
  - OSTEONECROSIS [None]
  - WOUND DEBRIDEMENT [None]
